FAERS Safety Report 5510715-X (Version None)
Quarter: 2007Q4

REPORT INFORMATION
  Report Type: 
  Country: None (occurrence: None)
  Receive Date: 20071108
  Receipt Date: 20071102
  Transmission Date: 20080405
  Serious: Yes (Other)
  Sender: FDA-Public Use
  Company Number: A0691261A

PATIENT
  Age: 37 Year
  Sex: Female

DRUGS (4)
  1. PAROXETINE [Suspect]
     Indication: ANXIETY DISORDER
     Dosage: 20MG PER DAY
     Route: 048
     Dates: start: 19940101
  2. ATENOLOL [Concomitant]
  3. VALTREX [Concomitant]
  4. ZYRTEC [Concomitant]

REACTIONS (10)
  - AGITATION [None]
  - ALCOHOLISM [None]
  - ANGER [None]
  - CONFUSIONAL STATE [None]
  - DISTURBANCE IN ATTENTION [None]
  - MOOD ALTERED [None]
  - SEXUAL DYSFUNCTION [None]
  - SUICIDAL IDEATION [None]
  - TEARFULNESS [None]
  - WITHDRAWAL SYNDROME [None]
